FAERS Safety Report 20411602 (Version 1)
Quarter: 2022Q1

REPORT INFORMATION
  Report Type: Spontaneous
  Country: PT (occurrence: PT)
  Receive Date: 20220201
  Receipt Date: 20220201
  Transmission Date: 20220423
  Serious: Yes (Hospitalization, Other)
  Sender: FDA-Public Use
  Company Number: PT-MLMSERVICE-20220113-3314948-1

PATIENT
  Age: 14 Year
  Sex: Female

DRUGS (2)
  1. METHOTREXATE [Suspect]
     Active Substance: METHOTREXATE
     Indication: Acute lymphocytic leukaemia
     Dosage: 2 TOTAL
     Route: 037
  2. ENOXAPARIN [Concomitant]
     Active Substance: ENOXAPARIN
     Indication: Thrombosis

REACTIONS (5)
  - Leukoencephalopathy [Recovered/Resolved]
  - Mydriasis [Recovered/Resolved]
  - Dysmetria [Recovered/Resolved]
  - Affect lability [Recovered/Resolved]
  - Quadriparesis [Recovered/Resolved]
